FAERS Safety Report 15619789 (Version 1)
Quarter: 2018Q4

REPORT INFORMATION
  Report Type: Report from Study
  Country: US (occurrence: US)
  Receive Date: 20181115
  Receipt Date: 20181115
  Transmission Date: 20190205
  Serious: No
  Sender: FDA-Public Use
  Company Number: PHEH2018US047520

PATIENT
  Age: 71 Year
  Sex: Female

DRUGS (1)
  1. COSENTYX [Suspect]
     Active Substance: SECUKINUMAB
     Indication: PSORIATIC ARTHROPATHY
     Dosage: 300 MG, QMO
     Route: 058
     Dates: start: 20170828

REACTIONS (6)
  - Cough [Unknown]
  - Skin plaque [Not Recovered/Not Resolved]
  - Chills [Unknown]
  - Malaise [Unknown]
  - Skin exfoliation [Not Recovered/Not Resolved]
  - Sneezing [Unknown]
